FAERS Safety Report 5663448-3 (Version None)
Quarter: 2008Q1

REPORT INFORMATION
  Report Type: 
  Country: None (occurrence: None)
  Receive Date: 20080310
  Receipt Date: 20080305
  Transmission Date: 20080703
  Serious: Yes (Other)
  Sender: FDA-Public Use
  Company Number: 2008SP002697

PATIENT
  Age: 51 Year
  Sex: Female
  Weight: 102.9665 kg

DRUGS (6)
  1. PEG-INTRON [Suspect]
     Indication: HEPATITIS C
     Dosage: 150 MCG;QW;SC
     Route: 058
     Dates: start: 20080104, end: 20080201
  2. RIBAVIRIN [Suspect]
     Indication: HEPATITIS C
     Dosage: 1400 MG;QD;PO
     Route: 048
     Dates: start: 20080104, end: 20080125
  3. METHADON HCL TAB [Concomitant]
  4. TELMISARTAN [Concomitant]
  5. OMEPRAZOLE [Concomitant]
  6. LEVOTHYROXINE SODIUM [Concomitant]

REACTIONS (16)
  - ANOREXIA [None]
  - BONE PAIN [None]
  - CONFUSIONAL STATE [None]
  - DISTURBANCE IN ATTENTION [None]
  - DRUG INTOLERANCE [None]
  - FATIGUE [None]
  - INSOMNIA [None]
  - IRRITABILITY [None]
  - LOSS OF CONSCIOUSNESS [None]
  - MALAISE [None]
  - MUSCLE INJURY [None]
  - NAUSEA [None]
  - PAIN OF SKIN [None]
  - POST PROCEDURAL COMPLICATION [None]
  - RETCHING [None]
  - TREMOR [None]
